FAERS Safety Report 9353671 (Version 2)
Quarter: 2013Q3

REPORT INFORMATION
  Report Type: Spontaneous
  Country: DK (occurrence: FR)
  Receive Date: 20130618
  Receipt Date: 20130821
  Transmission Date: 20140515
  Serious: Yes (Life-Threatening)
  Sender: FDA-Public Use
  Company Number: FR-FRI-1000045962

PATIENT
  Sex: Male
  Weight: 75 kg

DRUGS (3)
  1. ESCITALOPRAM [Suspect]
     Indication: DEPRESSION
     Dosage: 1 DF
     Route: 048
     Dates: start: 20130127, end: 20130328
  2. SERESTA [Concomitant]
     Indication: ANXIETY
     Dates: start: 20130130
  3. SERESTA [Concomitant]
     Indication: DEPRESSION

REACTIONS (1)
  - Atrioventricular block second degree [Recovered/Resolved]
